FAERS Safety Report 9266583 (Version 1)
Quarter: 2013Q2

REPORT INFORMATION
  Report Type: Spontaneous
  Country: CZ (occurrence: CZ)
  Receive Date: 20130502
  Receipt Date: 20130502
  Transmission Date: 20140414
  Serious: Yes (Other)
  Sender: FDA-Public Use
  Company Number: PHHY2013CZ042016

PATIENT
  Sex: Male

DRUGS (2)
  1. GLIVEC [Suspect]
     Dosage: 400 MG
  2. GLIVEC [Suspect]
     Dosage: 800 MG

REACTIONS (3)
  - Disease progression [Unknown]
  - Viral infection [Recovering/Resolving]
  - Leukopenia [Recovering/Resolving]
